FAERS Safety Report 8843548 (Version 1)
Quarter: 2012Q4

REPORT INFORMATION
  Report Type: 
  Country: PH (occurrence: PH)
  Receive Date: 20121016
  Receipt Date: 20121016
  Transmission Date: 20130627
  Serious: Yes (Death, Hospitalization)
  Sender: FDA-Public Use
  Company Number: PH-BAXTER-2012BAX019376

PATIENT
  Sex: Male

DRUGS (2)
  1. DIANEAL PD2 WITH 1.5% DEXTROSE [Suspect]
     Indication: CONTINUOUS AMBULATORY PERITONEAL DIALYSIS
     Route: 033
     Dates: start: 20120508
  2. DIANEAL PD2 WITH 2.5% DEXTROSE [Suspect]
     Indication: CONTINUOUS AMBULATORY PERITONEAL DIALYSIS
     Route: 033
     Dates: start: 20120508

REACTIONS (2)
  - Myocardial infarction [Fatal]
  - Hypotension [Unknown]
